FAERS Safety Report 9392163 (Version 1)
Quarter: 2013Q3

REPORT INFORMATION
  Report Type: Spontaneous
  Country: US (occurrence: US)
  Receive Date: 20130710
  Receipt Date: 20130710
  Transmission Date: 20140515
  Serious: No
  Sender: FDA-Public Use
  Company Number: US-009507513-1306USA010465

PATIENT
  Age: 45 Year
  Sex: Female

DRUGS (2)
  1. FOSAMAX [Suspect]
     Indication: OSTEOPOROSIS
     Dosage: UNK
     Route: 048
     Dates: start: 200306
  2. VITAMIN D (UNSPECIFIED) [Concomitant]

REACTIONS (1)
  - Vitamin D abnormal [Not Recovered/Not Resolved]
